FAERS Safety Report 11610649 (Version 2)
Quarter: 2015Q4

REPORT INFORMATION
  Report Type: Spontaneous
  Country: US (occurrence: US)
  Receive Date: 20151008
  Receipt Date: 20151123
  Transmission Date: 20160304
  Serious: Yes (Hospitalization, Other)
  Sender: FDA-Public Use
  Company Number: US-UCBSA-2015030792

PATIENT
  Age: 23 Year
  Sex: Male
  Weight: 69.8 kg

DRUGS (4)
  1. LEXAPRO [Concomitant]
     Active Substance: ESCITALOPRAM OXALATE
     Indication: BIPOLAR DISORDER
     Dosage: 30 MG, ONCE DAILY (QD)
     Route: 048
  2. KEPPRA XR [Suspect]
     Active Substance: LEVETIRACETAM
     Indication: SEIZURE
     Dosage: 750 MG, 3X/DAY (TID)
     Route: 048
     Dates: start: 2006
  3. SEROQUEL [Concomitant]
     Active Substance: QUETIAPINE FUMARATE
     Indication: BIPOLAR DISORDER
     Dosage: 200 MG, ONCE DAILY (QD)
     Route: 048
  4. VIMPAT [Suspect]
     Active Substance: LACOSAMIDE
     Indication: SEIZURE
     Dosage: 200 MG, ONCE DAILY (QD)
     Route: 048
     Dates: start: 2009

REACTIONS (5)
  - Seizure [Not Recovered/Not Resolved]
  - Social problem [Not Recovered/Not Resolved]
  - Brain neoplasm [Not Recovered/Not Resolved]
  - Anxiety [Not Recovered/Not Resolved]
  - Legal problem [Not Recovered/Not Resolved]

NARRATIVE: CASE EVENT DATE: 20140519
